FAERS Safety Report 14879567 (Version 2)
Quarter: 2018Q3

REPORT INFORMATION
  Report Type: Spontaneous
  Country: US (occurrence: US)
  Receive Date: 20180511
  Receipt Date: 20180808
  Transmission Date: 20181010
  Serious: Yes (Disabling, Other)
  Sender: FDA-Public Use
  Company Number: US-REGENERON PHARMACEUTICALS, INC.-2018-16293

PATIENT

DRUGS (3)
  1. VALSARTAN. [Concomitant]
     Active Substance: VALSARTAN
     Indication: PRODUCT USED FOR UNKNOWN INDICATION
     Dosage: 40 MG, QD
     Route: 048
  2. EYLEA [Suspect]
     Active Substance: AFLIBERCEPT
     Indication: RETINAL VEIN OCCLUSION
     Dosage: 2 MG, AS NECESSARY
     Route: 031
     Dates: start: 20171214, end: 20180221
  3. EYLEA [Suspect]
     Active Substance: AFLIBERCEPT
     Indication: EYE OEDEMA
     Dosage: 2 MG, AS NECESSARY
     Route: 031
     Dates: start: 20180221, end: 20180221

REACTIONS (2)
  - Blindness transient [Recovered/Resolved]
  - Endophthalmitis [Not Recovered/Not Resolved]

NARRATIVE: CASE EVENT DATE: 20180223
